FAERS Safety Report 13194174 (Version 2)
Quarter: 2017Q3

REPORT INFORMATION
  Report Type: Spontaneous
  Country: IE (occurrence: IE)
  Receive Date: 20170207
  Receipt Date: 20170922
  Transmission Date: 20171127
  Serious: Yes (Death, Life-Threatening, Hospitalization, Other)
  Sender: FDA-Public Use
  Company Number: IE-MYLANLABS-2016M1032956

PATIENT
  Age: 35 Year
  Sex: Female

DRUGS (4)
  1. CITALOPRAM [Concomitant]
     Active Substance: CITALOPRAM HYDROBROMIDE
     Indication: DEPRESSED MOOD
     Dosage: 20 MG, QD
     Route: 048
  2. CLOZARIL [Suspect]
     Active Substance: CLOZAPINE
     Indication: SCHIZOPHRENIA
     Dosage: 550 MG, QD
     Route: 048
     Dates: start: 20110805
  3. AMISULPRIDE [Concomitant]
     Active Substance: AMISULPRIDE
     Indication: PRODUCT USED FOR UNKNOWN INDICATION
     Dosage: 600 MG, UNK
  4. DIAZEPAM. [Concomitant]
     Active Substance: DIAZEPAM
     Indication: PRODUCT USED FOR UNKNOWN INDICATION
     Dosage: 4 MG, UNK
     Route: 048
     Dates: start: 20160412

REACTIONS (11)
  - Laceration [Recovering/Resolving]
  - Cardiac failure acute [Fatal]
  - Intentional self-injury [Unknown]
  - Mental impairment [Recovering/Resolving]
  - Suicide attempt [Unknown]
  - Toxicity to various agents [Fatal]
  - Coma scale abnormal [Unknown]
  - Loss of consciousness [Unknown]
  - Cardiac arrest [Unknown]
  - Acute psychosis [Recovering/Resolving]
  - Arrhythmia [Fatal]

NARRATIVE: CASE EVENT DATE: 2016
